FAERS Safety Report 17604657 (Version 5)
Quarter: 2020Q2

REPORT INFORMATION
  Report Type: Spontaneous
  Country: US (occurrence: US)
  Receive Date: 20200331
  Receipt Date: 20200617
  Transmission Date: 20200713
  Serious: Yes (Disabling, Other)
  Sender: FDA-Public Use
  Company Number: US-PFIZER INC-2020131679

PATIENT
  Age: 65 Year
  Sex: Male
  Weight: 86.18 kg

DRUGS (5)
  1. FUROSEMIDE. [Concomitant]
     Active Substance: FUROSEMIDE
     Indication: PERIPHERAL SWELLING
     Dosage: 1 DF, 2X/DAY
  2. XALKORI [Suspect]
     Active Substance: CRIZOTINIB
     Indication: LUNG NEOPLASM MALIGNANT
     Dosage: 250 MG, 2X/DAY
     Route: 048
     Dates: start: 2020, end: 202006
  3. XALKORI [Suspect]
     Active Substance: CRIZOTINIB
     Indication: METASTASES TO BONE
  4. MORPHINE [Concomitant]
     Active Substance: MORPHINE
     Indication: PAIN
     Dosage: UNK
  5. FUROSEMIDE. [Concomitant]
     Active Substance: FUROSEMIDE
     Indication: FLUID RETENTION
     Dosage: UNK, 1X/DAY

REACTIONS (10)
  - Muscular weakness [Unknown]
  - Gait disturbance [Unknown]
  - Asthenia [Unknown]
  - Peripheral swelling [Recovering/Resolving]
  - Fall [Unknown]
  - Upper limb fracture [Unknown]
  - Condition aggravated [Recovering/Resolving]
  - Rash vesicular [Recovering/Resolving]
  - Skin lesion [Recovering/Resolving]
  - Amnesia [Unknown]
